FAERS Safety Report 5449677-2 (Version None)
Quarter: 2007Q3

REPORT INFORMATION
  Report Type: 
  Country: None (occurrence: None)
  Receive Date: 20070910
  Receipt Date: 20070910
  Transmission Date: 20080115
  Serious: Yes (Other)
  Sender: FDA-Public Use
  Company Number: None

PATIENT
  Sex: Male
  Weight: 51.9369 kg

DRUGS (4)
  1. ISONIAZID [Suspect]
     Indication: TUBERCULOSIS
     Dosage: 300MG PO DAILY
     Route: 048
     Dates: start: 20070704, end: 20070731
  2. RIFAMPIN [Suspect]
     Indication: TUBERCULOSIS
     Dosage: 600MG PO
     Route: 048
     Dates: start: 20070704, end: 20070731
  3. ETHAMBUTOL [Suspect]
     Indication: TUBERCULOSIS
     Dosage: 800MG PO
     Route: 048
     Dates: start: 20070704, end: 20070731
  4. PYRAZIDAMIDE [Suspect]
     Indication: TUBERCULOSIS
     Dosage: 1000MG PO
     Route: 048
     Dates: start: 20070704, end: 20070731

REACTIONS (6)
  - HEADACHE [None]
  - HEPATIC ENZYME INCREASED [None]
  - NAUSEA [None]
  - PRURITUS [None]
  - RASH [None]
  - VOMITING [None]
